FAERS Safety Report 8854383 (Version 1)
Quarter: 2012Q4

REPORT INFORMATION
  Report Type: 
  Country: US (occurrence: US)
  Receive Date: 20121023
  Receipt Date: 20121023
  Transmission Date: 20130627
  Serious: No
  Sender: FDA-Public Use
  Company Number: US-VERTEX PHARMACEUTICAL INC.-2012-023113

PATIENT
  Age: 54 Year
  Sex: Female
  Weight: 66.2 kg

DRUGS (16)
  1. VX-950 [Suspect]
     Indication: HEPATITIS C
     Dosage: 750 mg, tid
     Route: 048
     Dates: start: 2012, end: 20121013
  2. PEGASYS [Concomitant]
     Indication: HEPATITIS C
     Dosage: 180 ?g, UNK
     Dates: start: 2012
  3. RIBASPHERE [Concomitant]
     Indication: HEPATITIS C
     Dosage: 1000 mg, qd
     Route: 048
     Dates: start: 2012
  4. RIBASPHERE [Concomitant]
     Dosage: 600 mg, qd
  5. ZANTAC [Concomitant]
  6. ALENDRONATE SODIUM [Concomitant]
     Dosage: 1 DF, qd
     Route: 048
  7. CALCIUM VITAMIN D [Concomitant]
     Dosage: 1 DF, qd
     Route: 048
  8. DOXEPIN [Concomitant]
     Dosage: 2 DF, qd
     Route: 048
  9. SYNTHROID [Concomitant]
     Dosage: 1 DF, qd
     Route: 048
  10. ASPIRIN [Concomitant]
     Dosage: 81 mg, qd
     Route: 048
  11. MAGNESIUM OXIDE [Concomitant]
     Dosage: 1 DF, qd
     Route: 048
  12. COQ-10 [Concomitant]
  13. FISH OIL NATURE MADE [Concomitant]
  14. FLAXSEED OIL [Concomitant]
  15. VITAMIN C                          /00008001/ [Concomitant]
  16. VITAMIN E                          /00110501/ [Concomitant]

REACTIONS (2)
  - Dyspepsia [Unknown]
  - Anaemia [Unknown]
